FAERS Safety Report 8431032-4 (Version None)
Quarter: 2012Q2

REPORT INFORMATION
  Report Type: 
  Country: None (occurrence: None)
  Receive Date: 20120612
  Receipt Date: 20120607
  Transmission Date: 20120825
  Serious: Yes (Hospitalization, Other)
  Sender: FDA-Public Use
  Company Number: JP-ABBOTT-11P-087-0701869-00

PATIENT
  Age: 35 Year
  Sex: Male

DRUGS (13)
  1. PENTAMIDINE ISETHIONATE [Concomitant]
     Indication: ACNE
     Dosage: 300 MG DAILY
     Route: 055
     Dates: start: 20101021
  2. COIX SEED [Concomitant]
     Indication: SKIN PAPILLOMA
     Route: 048
     Dates: start: 20101214
  3. CLINDAMYCIN PHOSPHATE [Concomitant]
     Indication: ACNE
     Dates: start: 20101214
  4. MYCOBUTIN [Suspect]
     Indication: ATYPICAL MYCOBACTERIUM TEST POSITIVE
     Route: 048
     Dates: start: 20091120, end: 20091211
  5. EMTRICITABINE/TENOFOVIR DISOPROXIL FUMARATE [Suspect]
     Indication: HIV INFECTION
     Route: 048
     Dates: start: 20091022, end: 20091202
  6. DARUNAVIR ETHANOLATE [Suspect]
     Indication: HIV INFECTION
     Dosage: 800 MG/DAY
     Route: 048
     Dates: start: 20091203
  7. ATAZANAVIR [Suspect]
     Indication: HIV INFECTION
     Dosage: 300 MG/DAY
     Route: 048
     Dates: start: 20091022, end: 20091202
  8. INTELENCE [Concomitant]
     Indication: HIV INFECTION
     Dosage: 400 MG DAILY
     Route: 048
     Dates: start: 20100921
  9. MASKIN [Concomitant]
     Indication: SKIN PAPILLOMA
     Dates: start: 20101214
  10. EPZICOM [Suspect]
     Indication: HIV INFECTION
     Route: 048
     Dates: start: 20091211, end: 20100920
  11. ISENTRESS [Concomitant]
     Indication: HIV INFECTION
     Dosage: 800 MG DAILY
     Route: 048
     Dates: start: 20100921
  12. VITAMIN B12 [Concomitant]
     Indication: HYPOAESTHESIA
     Dates: start: 20101214
  13. NORVIR [Suspect]
     Indication: HIV INFECTION
     Dosage: 100 MG/DAY
     Route: 048
     Dates: start: 20091022

REACTIONS (4)
  - CYTOMEGALOVIRUS CHORIORETINITIS [None]
  - MYCOBACTERIUM AVIUM COMPLEX INFECTION [None]
  - VISUAL IMPAIRMENT [None]
  - IMMUNE RECONSTITUTION SYNDROME [None]
